FAERS Safety Report 7804046-2 (Version None)
Quarter: 2011Q4

REPORT INFORMATION
  Report Type: 
  Country: None (occurrence: None)
  Receive Date: 20111010
  Receipt Date: 20111005
  Transmission Date: 20120403
  Serious: Yes (Other)
  Sender: FDA-Public Use
  Company Number: CA-JNJFOC-20110705208

PATIENT
  Sex: Female
  Weight: 55 kg

DRUGS (4)
  1. REMICADE [Suspect]
     Indication: CROHN'S DISEASE
     Route: 042
     Dates: start: 20110912
  2. TRANDATE [Concomitant]
     Route: 065
  3. REMICADE [Suspect]
     Route: 042
     Dates: start: 20090201
  4. PREDNISONE [Concomitant]
     Dosage: STARTED WITH 24 MG TAPERING DOSE TO 5 MG AND CURRENTLY WITH 20 MG DOSE
     Route: 048

REACTIONS (7)
  - CONTUSION [None]
  - JOINT WARMTH [None]
  - JOINT SWELLING [None]
  - INFECTION [None]
  - FALL [None]
  - SKIN ULCER [None]
  - ERYTHEMA [None]
